FAERS Safety Report 9006067 (Version 1)
Quarter: 2013Q1

REPORT INFORMATION
  Report Type: Spontaneous
  Country: DE (occurrence: DE)
  Receive Date: 20130109
  Receipt Date: 20130109
  Transmission Date: 20140127
  Serious: Yes (Hospitalization)
  Sender: FDA-Public Use
  Company Number: PHHY2013DE001657

PATIENT
  Age: 44 Year
  Sex: Female
  Weight: 58 kg

DRUGS (6)
  1. BASILIXIMAB [Suspect]
     Indication: RENAL TRANSPLANT
     Dosage: 75 MG
     Route: 042
     Dates: start: 20100619
  2. TACROLIMUS [Suspect]
     Indication: RENAL TRANSPLANT
     Dosage: 18 MG, UNK
     Route: 048
     Dates: start: 20100619
  3. PREDNISOLONE [Suspect]
     Indication: RENAL TRANSPLANT
     Dosage: 25 MG, UNK
     Route: 048
     Dates: start: 20100619
  4. CELLCEPT [Suspect]
     Indication: RENAL TRANSPLANT
     Dosage: 500 MG, UNK
     Route: 048
     Dates: start: 20100619
  5. CELLCEPT [Suspect]
     Dosage: 500 MG, UNK
     Route: 048
     Dates: start: 20110128
  6. CELLCEPT [Suspect]
     Dosage: 250 MG, UNK
     Route: 048
     Dates: start: 20110129, end: 20110130

REACTIONS (2)
  - Lymphocele [Recovered/Resolved]
  - Cytomegalovirus infection [Recovered/Resolved]
